FAERS Safety Report 4735543-4 (Version None)
Quarter: 2005Q3

REPORT INFORMATION
  Report Type: 
  Country: None (occurrence: None)
  Receive Date: 20050803
  Receipt Date: 20050729
  Transmission Date: 20060218
  Serious: Yes (Hospitalization)
  Sender: FDA-Public Use
  Company Number: 2005-07-0900

PATIENT
  Age: 54 Year
  Sex: Female
  Weight: 69.8539 kg

DRUGS (5)
  1. PEG-INTRON [Suspect]
     Indication: HEPATITIS C
     Dosage: 120 MCG QWK SUBCUTANEOUS
     Route: 058
     Dates: start: 20050518, end: 20050711
  2. RIBAVIRIN [Suspect]
     Indication: HEPATITIS C
     Dosage: ORAL
     Route: 048
     Dates: end: 20050711
  3. ULTRACET (TRAMADOL HYDROCHLORIDE/ACETAMINOPHEN) [Concomitant]
  4. EFFEXOR [Concomitant]
  5. CARBATROL [Concomitant]

REACTIONS (4)
  - DEHYDRATION [None]
  - DISEASE RECURRENCE [None]
  - ORAL INTAKE REDUCED [None]
  - TRIGEMINAL NEURALGIA [None]
